FAERS Safety Report 23597395 (Version 2)
Quarter: 2024Q1

REPORT INFORMATION
  Report Type: Spontaneous
  Country: HU (occurrence: HU)
  Receive Date: 20240305
  Receipt Date: 20240319
  Transmission Date: 20240410
  Serious: Yes (Congenital Anomaly, Other)
  Sender: FDA-Public Use
  Company Number: HU-DSJP-DSE-2024-109744

PATIENT
  Sex: Male
  Weight: 3.65 kg

DRUGS (1)
  1. EDOXABAN TOSYLATE [Suspect]
     Active Substance: EDOXABAN TOSYLATE
     Indication: Product used for unknown indication
     Dosage: UNK UNK, QD
     Route: 064

REACTIONS (4)
  - Ventricular septal defect [Unknown]
  - Atrial septal defect [Unknown]
  - Urine abnormality [Unknown]
  - Foetal exposure during pregnancy [Recovered/Resolved]
